FAERS Safety Report 20146279 (Version 1)
Quarter: 2021Q4

REPORT INFORMATION
  Report Type: Spontaneous
  Country: US (occurrence: None)
  Receive Date: 20211203
  Receipt Date: 20211203
  Transmission Date: 20220304
  Serious: Yes (Other)
  Sender: FDA-Public Use
  Company Number: None

PATIENT
  Age: 28 Year
  Sex: Male
  Weight: 92.25 kg

DRUGS (1)
  1. REGEN-COV [Suspect]
     Active Substance: CASIRIVIMAB\IMDEVIMAB
     Indication: SARS-CoV-2 test positive
     Dosage: OTHER FREQUENCY : ONE TIME DOSE;?
     Route: 041
     Dates: start: 20211203, end: 20211203

REACTIONS (2)
  - Infusion related reaction [None]
  - Pruritus [None]

NARRATIVE: CASE EVENT DATE: 20211203
